FAERS Safety Report 5121210-4 (Version None)
Quarter: 2006Q4

REPORT INFORMATION
  Report Type: 
  Country: None (occurrence: None)
  Receive Date: 20061002
  Receipt Date: 20060919
  Transmission Date: 20070319
  Serious: Yes (Death)
  Sender: FDA-Public Use
  Company Number: 2006-02418

PATIENT
  Age: 68 Year
  Sex: Male
  Weight: 80 kg

DRUGS (17)
  1. VELCADE [Suspect]
     Indication: MULTIPLE MYELOMA
     Dosage: 1.80 MG, UNK, INTRAVENOUS (SEE IMAGE)
     Route: 042
     Dates: start: 20060515, end: 20060525
  2. VELCADE [Suspect]
     Indication: MULTIPLE MYELOMA
     Dosage: 1.80 MG, UNK, INTRAVENOUS (SEE IMAGE)
     Route: 042
     Dates: start: 20050416
  3. VELCADE [Suspect]
     Indication: MULTIPLE MYELOMA
     Dosage: 1.80 MG, UNK, INTRAVENOUS (SEE IMAGE)
     Route: 042
     Dates: start: 20050601
  4. VELCADE [Suspect]
     Indication: MULTIPLE MYELOMA
     Dosage: 1.80 MG, UNK, INTRAVENOUS (SEE IMAGE)
     Route: 042
     Dates: start: 20060227
  5. VELCADE [Suspect]
     Indication: MULTIPLE MYELOMA
     Dosage: 1.80 MG, UNK, INTRAVENOUS (SEE IMAGE)
     Route: 042
     Dates: start: 20060515
  6. DEXAMETHASONE [Suspect]
     Indication: MULTIPLE MYELOMA
     Dosage: SEE IMAGE
     Dates: start: 20060807, end: 20060810
  7. DEXAMETHASONE [Suspect]
     Indication: MULTIPLE MYELOMA
     Dosage: SEE IMAGE
     Dates: start: 20050416
  8. DEXAMETHASONE [Suspect]
     Indication: MULTIPLE MYELOMA
     Dosage: SEE IMAGE
     Dates: start: 20050601
  9. DEXAMETHASONE [Suspect]
     Indication: MULTIPLE MYELOMA
     Dosage: SEE IMAGE
     Dates: start: 20060227
  10. DEXAMETHASONE [Suspect]
     Indication: MULTIPLE MYELOMA
     Dosage: SEE IMAGE
     Dates: start: 20060515
  11. THALIDOMIDE (THALIDOMIDE) TABLET [Suspect]
     Indication: MULTIPLE MYELOMA
     Dates: start: 20060714, end: 20060816
  12. THALIDOMIDE (THALIDOMIDE) TABLET [Suspect]
     Indication: MULTIPLE MYELOMA
     Dates: start: 20050416
  13. THALIDOMIDE (THALIDOMIDE) TABLET [Suspect]
     Indication: MULTIPLE MYELOMA
     Dates: start: 20050601
  14. THALIDOMIDE (THALIDOMIDE) TABLET [Suspect]
     Indication: MULTIPLE MYELOMA
     Dates: start: 20060227
  15. THALIDOMIDE (THALIDOMIDE) TABLET [Suspect]
     Indication: MULTIPLE MYELOMA
     Dates: start: 20060515
  16. CISPLATIN [Concomitant]
  17. DOXORUBICIN [Concomitant]

REACTIONS (13)
  - CERVICAL SPINAL STENOSIS [None]
  - EFFUSION [None]
  - EJECTION FRACTION DECREASED [None]
  - MASTOID DISORDER [None]
  - MENINGITIS [None]
  - MONOPLEGIA [None]
  - MUSCULAR WEAKNESS [None]
  - OSTEONECROSIS [None]
  - PNEUMOTHORAX [None]
  - SENSORY DISTURBANCE [None]
  - SPINAL COMPRESSION FRACTURE [None]
  - SPINAL OSTEOARTHRITIS [None]
  - WEST NILE VIRAL INFECTION [None]
